FAERS Safety Report 24760584 (Version 1)
Quarter: 2024Q4

REPORT INFORMATION
  Report Type: Report from Study
  Country: CA (occurrence: CA)
  Receive Date: 20241220
  Receipt Date: 20241220
  Transmission Date: 20250114
  Serious: Yes (Other)
  Sender: TEVA
  Company Number: CA-TEVA-VS-3263962

PATIENT
  Age: 54 Year
  Sex: Female

DRUGS (1)
  1. AJOVY [Suspect]
     Active Substance: FREMANEZUMAB-VFRM
     Indication: Migraine prophylaxis
     Route: 058
     Dates: start: 20241104

REACTIONS (7)
  - Seizure [Recovered/Resolved]
  - Inappropriate schedule of product administration [Unknown]
  - Body temperature abnormal [Unknown]
  - Dizziness [Unknown]
  - Injection site bruising [Unknown]
  - Balance disorder [Unknown]
  - Walking aid user [Unknown]

NARRATIVE: CASE EVENT DATE: 20240101
